FAERS Safety Report 8176100-X (Version None)
Quarter: 2012Q1

REPORT INFORMATION
  Report Type: 
  Country: None (occurrence: None)
  Receive Date: 20120301
  Receipt Date: 20120221
  Transmission Date: 20120608
  Serious: Yes (Hospitalization, Other)
  Sender: FDA-Public Use
  Company Number: JP-BRISTOL-MYERS SQUIBB COMPANY-16412066

PATIENT
  Age: 5 Decade
  Sex: Male

DRUGS (4)
  1. NATEGLINIDE [Concomitant]
  2. METFORMIN HCL [Suspect]
     Indication: TYPE 2 DIABETES MELLITUS
     Route: 048
  3. SITAGLIPTIN PHOSPHATE [Concomitant]
     Dosage: TRADE: GLACTIV
  4. GLYBURIDE [Concomitant]

REACTIONS (2)
  - DIABETES MELLITUS INADEQUATE CONTROL [None]
  - CARDIAC FAILURE [None]
